FAERS Safety Report 8911428 (Version 1)
Quarter: 2012Q4

REPORT INFORMATION
  Report Type: 
  Country: US (occurrence: US)
  Receive Date: 20121116
  Receipt Date: 20121116
  Transmission Date: 20130627
  Serious: Yes (Hospitalization)
  Sender: FDA-Public Use
  Company Number: US-BAYER-2012-118478

PATIENT
  Age: 20 Year
  Sex: Female
  Weight: 68 kg

DRUGS (15)
  1. YAZ [Suspect]
     Indication: BIRTH CONTROL
  2. YAZ [Suspect]
     Indication: ENDOMETRIOSIS
  3. ASACOL [Concomitant]
     Indication: ULCERATIVE COLITIS
     Dosage: 800 mg, TID
  4. COLOCORT [Concomitant]
     Dosage: UNK UNK, BID
  5. ENTOCORT [Concomitant]
     Indication: ULCERATIVE COLITIS, UNSPECIFIED
     Dosage: 3 mg, TID
  6. TYLENOL [Concomitant]
  7. MIRALAX [Concomitant]
     Dosage: Once to twice daily
  8. BENTYL [Concomitant]
     Dosage: 20 mg, QID as needed versus 20 mg daily
  9. ZOFRAN [Concomitant]
     Indication: VOMITING
     Dosage: 4 mg, QID as needed
     Route: 048
  10. DILAUDID [Concomitant]
     Indication: PAIN
     Dosage: 2 mg, Q4HR as needed
     Route: 048
  11. PHENERGAN [Concomitant]
  12. NORMAL SALINE [Concomitant]
  13. DICYCLOMINE [Concomitant]
  14. NEXIUM [Concomitant]
  15. SENOKOT [Concomitant]

REACTIONS (4)
  - Deep vein thrombosis [None]
  - Vena cava thrombosis [None]
  - Pelvic venous thrombosis [None]
  - Renal vein thrombosis [None]
